FAERS Safety Report 4650820-3 (Version None)
Quarter: 2005Q2

REPORT INFORMATION
  Report Type: 
  Country: None (occurrence: None)
  Receive Date: 20050503
  Receipt Date: 20040712
  Transmission Date: 20051028
  Serious: Yes (Death, Other)
  Sender: FDA-Public Use
  Company Number: PHBS2004BE09404

PATIENT
  Age: 58 Year
  Sex: Female

DRUGS (6)
  1. BLOOD TRANSFUSION, AUXILIARY PRODUCTS [Concomitant]
     Indication: ANAEMIA
  2. EMCONCOR [Concomitant]
     Indication: CARDIAC FAILURE CHRONIC
     Dates: start: 20000101
  3. ENALAPRIL MALEATE [Concomitant]
     Indication: CARDIAC FAILURE CHRONIC
     Dates: start: 20000101
  4. LASIX [Concomitant]
     Indication: CARDIAC FAILURE CHRONIC
     Dates: start: 20000101
  5. ALDACTONE [Concomitant]
     Indication: CARDIAC FAILURE CHRONIC
     Dosage: UNK, UNK
     Dates: start: 20000101
  6. DESFERAL [Suspect]
     Indication: BLOOD IRON INCREASED
     Dosage: 900 MG, BID
     Route: 058
     Dates: start: 20000101, end: 20040401

REACTIONS (5)
  - CARDIAC FAILURE [None]
  - DRUG INTOLERANCE [None]
  - MACULOPATHY [None]
  - RETINOPATHY [None]
  - VISUAL ACUITY REDUCED [None]
